FAERS Safety Report 17776102 (Version 2)
Quarter: 2020Q2

REPORT INFORMATION
  Report Type: Spontaneous
  Country: US (occurrence: US)
  Receive Date: 20200513
  Receipt Date: 20200514
  Transmission Date: 20200714
  Serious: No
  Sender: FDA-Public Use
  Company Number: US-PFIZER INC-2020190776

PATIENT
  Age: 77 Year
  Sex: Female

DRUGS (2)
  1. AROMASIN [Suspect]
     Active Substance: EXEMESTANE
     Indication: BREAST CANCER FEMALE
     Dosage: 25 MG
  2. AROMASIN [Suspect]
     Active Substance: EXEMESTANE
     Indication: NON-HODGKIN^S LYMPHOMA

REACTIONS (1)
  - Malaise [Unknown]
